FAERS Safety Report 7017999-X (Version None)
Quarter: 2010Q3

REPORT INFORMATION
  Report Type: 
  Country: None (occurrence: None)
  Receive Date: 20100928
  Receipt Date: 20100915
  Transmission Date: 20110219
  Serious: Yes (Other)
  Sender: FDA-Public Use
  Company Number: PHHY2010JP41962

PATIENT
  Sex: Female

DRUGS (26)
  1. CLOZARIL [Suspect]
     Indication: SCHIZOPHRENIA
     Dosage: 12.5 MG, QD
     Route: 048
     Dates: start: 20100301
  2. CLOZARIL [Suspect]
     Dosage: 25 MG, QD
     Route: 048
     Dates: start: 20100302
  3. CLOZARIL [Suspect]
     Dosage: 50 MG, QD
     Route: 048
     Dates: start: 20100305
  4. CLOZARIL [Suspect]
     Dosage: 75 MG, QD
     Route: 048
     Dates: start: 20100508
  5. CLOZARIL [Suspect]
     Dosage: 100 MG, QD
     Route: 048
     Dates: start: 20100310
  6. CLOZARIL [Suspect]
     Dosage: 125 MG, QD
     Route: 048
     Dates: start: 20100312
  7. CLOZARIL [Suspect]
     Dosage: 150 MG, QD
     Route: 048
     Dates: start: 20100315
  8. CLOZARIL [Suspect]
     Dosage: 175 MG, QD
     Route: 048
     Dates: start: 20100323
  9. CLOZARIL [Suspect]
     Dosage: 200 MG, QD
     Route: 048
     Dates: start: 20100329
  10. CLOZARIL [Suspect]
     Dosage: 225 MG, QD
     Route: 048
     Dates: start: 20100402
  11. CLOZARIL [Suspect]
     Dosage: 250 MG, QD
     Route: 048
     Dates: start: 20100405
  12. CLOZARIL [Suspect]
     Dosage: 275 MG, QD
     Route: 048
     Dates: start: 20100407
  13. CLOZARIL [Suspect]
     Dosage: 300 MG, QD
     Route: 048
     Dates: start: 20100409
  14. CLOZARIL [Suspect]
     Dosage: 350 MG, QD
     Route: 047
     Dates: start: 20100412
  15. CLOZARIL [Suspect]
     Dosage: 400 MG, QD
     Route: 047
     Dates: start: 20100414
  16. CLOZARIL [Suspect]
     Dosage: 450 MG, QD
     Route: 048
     Dates: start: 20100416
  17. CLOZARIL [Suspect]
     Dosage: 500 MG, QD
     Route: 048
     Dates: start: 20100419
  18. CLOZARIL [Suspect]
     Dosage: 525 MG, QD
     Route: 048
     Dates: start: 20100423
  19. CLOZARIL [Suspect]
     Dosage: 600 MG, QD
     Route: 048
     Dates: start: 20100426
  20. CLOZARIL [Suspect]
     Dosage: 600 MG, QD
     Dates: start: 20100514
  21. BLONANSERIN [Concomitant]
     Dosage: UNK
     Route: 048
     Dates: start: 20100301, end: 20100304
  22. SEROQUEL [Concomitant]
     Dosage: UNK
     Route: 048
     Dates: start: 20100301, end: 20100414
  23. FLUNITRAZEPAM [Concomitant]
     Dosage: UNK
     Route: 048
  24. NITRAZEPAM [Concomitant]
     Route: 048
  25. BIPERIDEN HYDROCHLORIDE TAB [Concomitant]
     Dosage: UNK
     Route: 048
     Dates: start: 20100302
  26. SENNOSIDE [Concomitant]
     Indication: CONSTIPATION
     Route: 048

REACTIONS (5)
  - HEPATIC FUNCTION ABNORMAL [None]
  - PYREXIA [None]
  - SALIVARY HYPERSECRETION [None]
  - SUICIDE ATTEMPT [None]
  - TREMOR [None]
